FAERS Safety Report 23592375 (Version 1)
Quarter: 2024Q1

REPORT INFORMATION
  Report Type: Spontaneous
  Country: US (occurrence: US)
  Receive Date: 20240304
  Receipt Date: 20240304
  Transmission Date: 20240409
  Serious: Yes (Hospitalization)
  Sender: FDA-Public Use
  Company Number: US-PHARMING-PHAUS2024000167

PATIENT

DRUGS (1)
  1. RUCONEST [Suspect]
     Active Substance: CONESTAT ALFA
     Indication: Hereditary angioedema
     Dosage: 4200 IU, BEFORE EVERY IVIG INFUSION AT DAY TWO OF THE CYCLE EVERY THREE WEEKS, THEN 4200 IU ONCE WEE
     Route: 042
     Dates: start: 202011

REACTIONS (4)
  - Headache [Unknown]
  - Weight decreased [Unknown]
  - Product use in unapproved indication [Unknown]
  - Intentional product use issue [Unknown]
